FAERS Safety Report 8152733-1 (Version None)
Quarter: 2012Q1

REPORT INFORMATION
  Report Type: 
  Country: None (occurrence: None)
  Receive Date: 20120221
  Receipt Date: 20120210
  Transmission Date: 20120608
  Serious: Yes (Hospitalization)
  Sender: FDA-Public Use
  Company Number: US-JNJFOC-20120206324

PATIENT
  Sex: Female
  Weight: 40 kg

DRUGS (7)
  1. NEXIUM [Concomitant]
  2. ZOLOFT [Concomitant]
  3. HUMIRA [Concomitant]
     Dates: start: 20111215
  4. REMICADE [Suspect]
     Indication: INFLAMMATORY BOWEL DISEASE
     Route: 042
     Dates: start: 20091001, end: 20110227
  5. ACETAMINOPHEN [Concomitant]
  6. STRATTERA [Concomitant]
  7. PREDNISONE [Concomitant]

REACTIONS (1)
  - HAEMATOCHEZIA [None]
